FAERS Safety Report 6849341-9 (Version None)
Quarter: 2010Q3

REPORT INFORMATION
  Report Type: 
  Country: None (occurrence: None)
  Receive Date: 20100716
  Receipt Date: 20070927
  Transmission Date: 20110219
  Serious: No
  Sender: FDA-Public Use
  Company Number: US-PFIZER INC-2007082507

PATIENT
  Sex: Female
  Weight: 79.4 kg

DRUGS (4)
  1. CHANTIX [Suspect]
     Indication: SMOKING CESSATION THERAPY
     Route: 048
     Dates: start: 20070901, end: 20070926
  2. TYLENOL [Concomitant]
     Indication: PERNICIOUS ANAEMIA
  3. ADVIL LIQUI-GELS [Concomitant]
     Indication: PERNICIOUS ANAEMIA
  4. CYANOCOBALAMIN [Concomitant]
     Indication: PERNICIOUS ANAEMIA

REACTIONS (3)
  - ABNORMAL DREAMS [None]
  - INSOMNIA [None]
  - NAUSEA [None]
